FAERS Safety Report 16954660 (Version 1)
Quarter: 2019Q4

REPORT INFORMATION
  Report Type: Spontaneous
  Country: US (occurrence: US)
  Receive Date: 20191024
  Receipt Date: 20191024
  Transmission Date: 20200122
  Serious: No
  Sender: FDA-Public Use
  Company Number: US-ACCORD-113627

PATIENT
  Sex: Female

DRUGS (11)
  1. LOSARTAN. [Concomitant]
     Active Substance: LOSARTAN
  2. PREDNISONE. [Concomitant]
     Active Substance: PREDNISONE
  3. TACROLIMUS. [Suspect]
     Active Substance: TACROLIMUS
     Indication: PRODUCT USED FOR UNKNOWN INDICATION
     Dosage: STRENGTH: 1 MG
     Dates: start: 201811
  4. CARVEDILOL/CARVEDILOL HYDROCHLODRIDE [Concomitant]
  5. RANITIDINE. [Concomitant]
     Active Substance: RANITIDINE
  6. HYDROCHLOROTHIAZIDE. [Concomitant]
     Active Substance: HYDROCHLOROTHIAZIDE
  7. AMLODIPINE [Concomitant]
     Active Substance: AMLODIPINE BESYLATE
  8. MAG-OX [Concomitant]
     Active Substance: MAGNESIUM OXIDE
  9. ALLOPURINOL. [Concomitant]
     Active Substance: ALLOPURINOL
  10. ERGOCALCIFEROL. [Concomitant]
     Active Substance: ERGOCALCIFEROL
  11. PRAVASTATIN. [Concomitant]
     Active Substance: PRAVASTATIN

REACTIONS (7)
  - Swollen tongue [Recovered/Resolved]
  - Product substitution issue [Unknown]
  - Pharyngeal swelling [Recovered/Resolved]
  - Throat irritation [Unknown]
  - Tongue discomfort [Unknown]
  - Condition aggravated [Unknown]
  - Hypersensitivity [Unknown]
